FAERS Safety Report 9088286 (Version 1)
Quarter: 2013Q1

REPORT INFORMATION
  Report Type: Report from Study
  Country: US (occurrence: US)
  Receive Date: 20130130
  Receipt Date: 20130130
  Transmission Date: 20140127
  Serious: Yes (Other)
  Sender: FDA-Public Use
  Company Number: US-ABBOTT-12P-163-0976008-00

PATIENT
  Age: 74 Year
  Sex: Male
  Weight: 62.2 kg

DRUGS (2)
  1. HUMIRA [Suspect]
     Indication: RHEUMATOID ARTHRITIS
     Dosage: AS DIRECTED
     Route: 058
     Dates: start: 201012
  2. FLUTHASONE [Concomitant]

REACTIONS (1)
  - Rheumatoid nodule [Unknown]
